FAERS Safety Report 15776815 (Version 4)
Quarter: 2019Q1

REPORT INFORMATION
  Report Type: Spontaneous
  Country: US (occurrence: US)
  Receive Date: 20181231
  Receipt Date: 20190204
  Transmission Date: 20190417
  Serious: No
  Sender: FDA-Public Use
  Company Number: US-PFIZER INC-2018526771

PATIENT
  Age: 61 Year
  Sex: Female
  Weight: 84.35 kg

DRUGS (9)
  1. OXYMORPHONE [Concomitant]
     Active Substance: OXYMORPHONE
     Indication: MONOPLEGIA
     Dosage: 60 MG, 2X/DAY (WITH WATER)
     Dates: start: 2000
  2. LYRICA [Suspect]
     Active Substance: PREGABALIN
     Indication: NEURALGIA
  3. LYRICA [Suspect]
     Active Substance: PREGABALIN
     Indication: RADICULOPATHY
     Dosage: 150 MG, TWO TIMES PER DAY (6 AM AND 6 PM)
     Route: 048
     Dates: start: 20190114
  4. LYRICA [Suspect]
     Active Substance: PREGABALIN
     Indication: INTERVERTEBRAL DISC DISORDER
     Dosage: 150 MG, 2X/DAY
     Route: 048
     Dates: start: 201809
  5. OPANA [Concomitant]
     Active Substance: OXYMORPHONE HYDROCHLORIDE
     Dosage: UNK
  6. MORPHINE SULPHATE [Concomitant]
     Active Substance: MORPHINE SULFATE
     Dosage: 60 MG, 2X/DAY
  7. LYRICA [Suspect]
     Active Substance: PREGABALIN
     Indication: NERVE INJURY
     Dosage: 150 MG, TWO TIMES PER DAY (6 AM AND 6 PM)
     Route: 048
  8. LYRICA [Suspect]
     Active Substance: PREGABALIN
     Indication: LUMBAR RADICULOPATHY
  9. OXYCODONE [Concomitant]
     Active Substance: OXYCODONE
     Dosage: UNK

REACTIONS (7)
  - Malaise [Unknown]
  - Intentional product misuse [Recovered/Resolved]
  - Pain in extremity [Recovered/Resolved]
  - Dry mouth [Unknown]
  - Back pain [Recovered/Resolved]
  - Condition aggravated [Recovered/Resolved]
  - Drug withdrawal syndrome [Unknown]

NARRATIVE: CASE EVENT DATE: 201809
